FAERS Safety Report 9464846 (Version 2)
Quarter: 2013Q3

REPORT INFORMATION
  Report Type: Spontaneous
  Country: US (occurrence: US)
  Receive Date: 20130819
  Receipt Date: 20130926
  Transmission Date: 20140515
  Serious: No
  Sender: FDA-Public Use
  Company Number: US-PFIZER INC-2013235934

PATIENT
  Age: 53 Year
  Sex: Female
  Weight: 87.98 kg

DRUGS (10)
  1. SOMAVERT [Suspect]
     Indication: ACROMEGALY
     Dosage: 10 MG, 1X/DAY
     Route: 058
     Dates: start: 201009
  2. LEVOTHYROXINE [Concomitant]
     Indication: HYPOTHYROIDISM
     Dosage: 100 UG, UNK
  3. HYDROCORT [Concomitant]
     Dosage: 10 MG, UNK
  4. SOLU-CORTEF [Concomitant]
     Dosage: 100 MG, UNK
     Route: 030
  5. CORTEF [Concomitant]
     Indication: MALAISE
     Dosage: 5 MG, 1X/DAY
     Route: 048
  6. LEVOXYL [Concomitant]
     Dosage: 125 UG, (EVERY MORNING BEFORE BREAKFAST)
     Route: 048
  7. SYNTHROID [Concomitant]
     Dosage: 125 UG, 1X/DAY (1 TABLET BY MOUTH EVERY MORNING BEFORE BREAKFAST)
     Route: 048
  8. INSULIN [Concomitant]
     Dosage: 1 ML, 1X/DAY, (INSULIN SYRINGE NEEDLE U - 100 29G X 1/2^^)
  9. SANDOSTATIN [Concomitant]
     Indication: INSULIN-LIKE GROWTH FACTOR INCREASED
  10. CABERGOLINE [Concomitant]
     Indication: INSULIN-LIKE GROWTH FACTOR INCREASED
     Dosage: UNK

REACTIONS (4)
  - Myalgia [Unknown]
  - Bone pain [Unknown]
  - Nausea [Recovered/Resolved]
  - Arthralgia [Unknown]
